FAERS Safety Report 25096441 (Version 2)
Quarter: 2025Q2

REPORT INFORMATION
  Report Type: Spontaneous
  Country: US (occurrence: US)
  Receive Date: 20250319
  Receipt Date: 20250417
  Transmission Date: 20250717
  Serious: No
  Sender: ASSERTIO THERAPEUTICS
  Company Number: US-ASSERTIO THERAPEUTICS, INC.-US-2025AST000125

PATIENT

DRUGS (1)
  1. SYMPAZAN [Suspect]
     Active Substance: CLOBAZAM
     Indication: Product used for unknown indication

REACTIONS (1)
  - Wrong technique in product usage process [Unknown]
